FAERS Safety Report 9483065 (Version 1)
Quarter: 2013Q3

REPORT INFORMATION
  Report Type: Spontaneous
  Country: US (occurrence: US)
  Receive Date: 20130828
  Receipt Date: 20130828
  Transmission Date: 20140515
  Serious: No
  Sender: FDA-Public Use
  Company Number: US-MUTUAL PHARMACEUTICAL COMPANY, INC.-DXCY20120010

PATIENT
  Age: 67 Year
  Sex: Male

DRUGS (6)
  1. DOXYCYCLINE [Suspect]
     Indication: FOLLICULITIS
     Route: 048
     Dates: start: 20120816, end: 20120827
  2. NIFEDIPINE [Concomitant]
     Indication: PRODUCT USED FOR UNKNOWN INDICATION
     Route: 065
  3. HUMALOG INSULIN [Concomitant]
     Indication: DIABETES MELLITUS
     Route: 065
  4. PREVACID [Concomitant]
     Indication: GASTROOESOPHAGEAL REFLUX DISEASE
     Route: 065
  5. CIALIS [Concomitant]
     Indication: MALE SEXUAL DYSFUNCTION
     Route: 065
  6. ACCUPRIL [Concomitant]
     Indication: PRODUCT USED FOR UNKNOWN INDICATION
     Route: 065

REACTIONS (2)
  - Vision blurred [Unknown]
  - Headache [Unknown]
